FAERS Safety Report 25460457 (Version 2)
Quarter: 2025Q3

REPORT INFORMATION
  Report Type: Report from Study
  Country: CN (occurrence: CN)
  Receive Date: 20250620
  Receipt Date: 20250909
  Transmission Date: 20251021
  Serious: Yes (Hospitalization, Other)
  Sender: ELI LILLY AND COMPANY
  Company Number: CN-ELI_LILLY_AND_COMPANY-CN202308014796

PATIENT
  Age: 53 Year
  Sex: Female
  Weight: 62 kg

DRUGS (11)
  1. ABEMACICLIB [Suspect]
     Active Substance: ABEMACICLIB
     Indication: Breast cancer
     Dosage: 150 MG, BID
     Route: 048
     Dates: start: 20220117
  2. ABEMACICLIB [Suspect]
     Active Substance: ABEMACICLIB
     Dosage: 100 MG, BID
     Route: 048
  3. ABEMACICLIB [Suspect]
     Active Substance: ABEMACICLIB
     Dosage: 100 MG, BID
     Route: 048
  4. ABEMACICLIB [Suspect]
     Active Substance: ABEMACICLIB
     Dosage: 100 MG, BID
     Route: 048
  5. ABEMACICLIB [Suspect]
     Active Substance: ABEMACICLIB
     Dosage: 100 MG, BID
     Route: 048
  6. ABEMACICLIB [Suspect]
     Active Substance: ABEMACICLIB
     Dosage: 100 MG, DAILY
     Route: 048
  7. ABEMACICLIB [Suspect]
     Active Substance: ABEMACICLIB
     Route: 048
  8. ABEMACICLIB [Suspect]
     Active Substance: ABEMACICLIB
     Route: 048
  9. FASLODEX [Suspect]
     Active Substance: FULVESTRANT
     Indication: Product used for unknown indication
     Route: 065
  10. IBANDRONATE SODIUM [Concomitant]
     Active Substance: IBANDRONATE SODIUM
     Indication: Product used for unknown indication
     Route: 041
  11. ALFACALCIDOL [Concomitant]
     Active Substance: ALFACALCIDOL
     Indication: Osteoporosis
     Route: 065

REACTIONS (38)
  - Dry eye [Unknown]
  - Muscular weakness [Unknown]
  - Pneumonia [Unknown]
  - Skin haemorrhage [Recovering/Resolving]
  - Renal injury [Unknown]
  - Malignant neoplasm progression [Unknown]
  - Ocular discomfort [Recovering/Resolving]
  - Carcinoembryonic antigen increased [Recovering/Resolving]
  - Drug intolerance [Recovering/Resolving]
  - Skin atrophy [Recovering/Resolving]
  - Erythema [Recovering/Resolving]
  - Skin wound [Recovering/Resolving]
  - Skin exfoliation [Recovering/Resolving]
  - Skin discolouration [Recovering/Resolving]
  - Eyelid irritation [Unknown]
  - Sleep disorder due to general medical condition, insomnia type [Unknown]
  - Oedema [Recovering/Resolving]
  - Weight increased [Recovering/Resolving]
  - Body height decreased [Recovering/Resolving]
  - Dyspnoea [Recovered/Resolved]
  - Onychoclasis [Unknown]
  - Nail disorder [Recovering/Resolving]
  - Cardiac disorder [Unknown]
  - Muscle spasms [Recovered/Resolved]
  - Off label use [Unknown]
  - Tachycardia [Recovering/Resolving]
  - Tumour marker increased [Recovering/Resolving]
  - Madarosis [Unknown]
  - Toxicity to various agents [Unknown]
  - Discomfort [Unknown]
  - Metabolic disorder [Unknown]
  - Inappropriate schedule of product administration [Unknown]
  - Pruritus [Unknown]
  - Rash [Recovering/Resolving]
  - Urinary tract infection [Recovering/Resolving]
  - Diarrhoea [Recovering/Resolving]
  - Blood creatinine increased [Recovering/Resolving]
  - Alopecia [Unknown]

NARRATIVE: CASE EVENT DATE: 20230601
